FAERS Safety Report 16970708 (Version 2)
Quarter: 2024Q2

REPORT INFORMATION
  Report Type: Spontaneous
  Country: US (occurrence: US)
  Receive Date: 20191029
  Receipt Date: 20240627
  Transmission Date: 20240717
  Serious: No
  Sender: FDA-Public Use
  Company Number: US-TOLMAR, INC.-19US000813

PATIENT
  Age: 33 Year
  Sex: Female

DRUGS (2)
  1. LEUPROLIDE ACETATE [Suspect]
     Active Substance: ISOPROPYL ALCOHOL\LEUPROLIDE ACETATE
     Indication: Artificial insemination
     Dosage: 1 MILLIGRAM, Q 12 HR
  2. HUMAN CHORIONIC GONADOTROPIN [Suspect]
     Active Substance: GONADOTROPHIN, CHORIONIC
     Indication: Artificial insemination
     Dosage: 10000 INTERNATIONAL UNIT
     Route: 030

REACTIONS (3)
  - Luteinising unruptured follicle syndrome [Unknown]
  - Contraindicated product administered [Unknown]
  - Off label use [Unknown]
